FAERS Safety Report 4402239-8 (Version None)
Quarter: 2004Q3

REPORT INFORMATION
  Report Type: 
  Country: None (occurrence: None)
  Receive Date: 20040720
  Receipt Date: 20040629
  Transmission Date: 20050211
  Serious: Yes (Other)
  Sender: FDA-Public Use
  Company Number: SE-BRISTOL-MYERS SQUIBB COMPANY-12628855

PATIENT
  Age: 78 Year
  Sex: Female

DRUGS (5)
  1. TAXOL [Suspect]
     Indication: OVARIAN CANCER
     Dosage: CYCLE 1: 02-JUN-2004
     Route: 042
     Dates: start: 20040624, end: 20040624
  2. BETAPRED [Concomitant]
     Indication: PREMEDICATION
  3. TAVEGYL [Concomitant]
     Indication: PREMEDICATION
  4. NAVOBAN [Concomitant]
     Indication: PREMEDICATION
  5. ACINIL [Concomitant]
     Indication: PREMEDICATION

REACTIONS (2)
  - BACK PAIN [None]
  - MUSCLE TWITCHING [None]
